FAERS Safety Report 5999135-1 (Version None)
Quarter: 2008Q4

REPORT INFORMATION
  Report Type: 
  Country: None (occurrence: None)
  Receive Date: 20081211
  Receipt Date: 20081125
  Transmission Date: 20090506
  Serious: Yes (Hospitalization)
  Sender: FDA-Public Use
  Company Number: KV200800537

PATIENT
  Age: 74 Year
  Sex: Female

DRUGS (9)
  1. PROPAFENONE HYDROCHLORIDE   TABLET, 225MG [Suspect]
     Indication: CARDIAC DISORDER
     Dosage: 225MG, TID, ORAL
     Route: 048
     Dates: start: 20050101
  2. PULMICORT [Concomitant]
  3. SINGULAIR ./01362601/ (MONTELUKAST) [Concomitant]
  4. LASIX [Concomitant]
  5. HYDROCODONE BITARTRATE [Concomitant]
  6. COZAAR [Concomitant]
  7. LYRICA [Concomitant]
  8. REGLAN /00041901/ (METOCLOPRAMIDE) [Concomitant]
  9. PROTONIX /01263201/ (PANTOPRAZOLE) [Concomitant]

REACTIONS (3)
  - CARDIAC FAILURE CONGESTIVE [None]
  - CONDITION AGGRAVATED [None]
  - PRODUCT QUALITY ISSUE [None]
